FAERS Safety Report 4348820-6 (Version None)
Quarter: 2004Q2

REPORT INFORMATION
  Report Type: 
  Country: None (occurrence: None)
  Receive Date: 20040423
  Receipt Date: 20040415
  Transmission Date: 20050107
  Serious: Yes (Death)
  Sender: FDA-Public Use
  Company Number: 2004209488IN

PATIENT
  Age: 70 Year
  Sex: Female

DRUGS (1)
  1. FRAGMIN [Suspect]
     Indication: ANGINA UNSTABLE
     Dosage: 10 ML, DAILY, SUBCUTANEOUS
     Route: 058

REACTIONS (1)
  - ANGINA UNSTABLE [None]
